FAERS Safety Report 10803086 (Version 1)
Quarter: 2015Q1

REPORT INFORMATION
  Report Type: Spontaneous
  Country: US (occurrence: US)
  Receive Date: 20150217
  Receipt Date: 20150217
  Transmission Date: 20150721
  Serious: Yes (Other)
  Sender: FDA-Public Use
  Company Number: US-PURDUE-USA-2015-0120972

PATIENT
  Sex: Male

DRUGS (2)
  1. SENOKOT [Suspect]
     Active Substance: SENNOSIDES
     Dosage: UNK
     Route: 048
  2. SENOKOT [Suspect]
     Active Substance: SENNOSIDES
     Indication: PRODUCT USED FOR UNKNOWN INDICATION
     Dosage: 4 CAPSL, DAILY
     Route: 048

REACTIONS (5)
  - Blood pressure decreased [Unknown]
  - Fall [Recovered/Resolved]
  - Movement disorder [Unknown]
  - Hip fracture [Unknown]
  - Off label use [Unknown]
